FAERS Safety Report 8579164-4 (Version None)
Quarter: 2012Q3

REPORT INFORMATION
  Report Type: 
  Country: None (occurrence: None)
  Receive Date: 20120726
  Receipt Date: 20120621
  Transmission Date: 20120928
  Serious: Yes (Other)
  Sender: FDA-Public Use
  Company Number: 3000718406-2012-00003

PATIENT
  Age: 60 Year
  Sex: Male

DRUGS (2)
  1. UBIT (13C-UREA) TABLET, 100 MG [Suspect]
     Indication: GASTRITIS
     Dosage: 100 MG, QD,
     Dates: start: 20120616
  2. AMLODIPINE BESYLATE [Concomitant]

REACTIONS (2)
  - GASTRITIS [None]
  - RASH GENERALISED [None]
